FAERS Safety Report 12768514 (Version 1)
Quarter: 2016Q3

REPORT INFORMATION
  Report Type: Spontaneous
  Country: None (occurrence: CO)
  Receive Date: 20160921
  Receipt Date: 20160921
  Transmission Date: 20161109
  Serious: Yes (Other)
  Sender: FDA-Public Use
  Company Number: CO-POPULATION COUNCIL, INC.-1057532

PATIENT
  Age: 14 Year
  Sex: Female

DRUGS (1)
  1. JADELLE [Suspect]
     Active Substance: LEVONORGESTREL
     Indication: CONTRACEPTION
     Route: 059
     Dates: start: 20160309

REACTIONS (5)
  - Genital haemorrhage [Not Recovered/Not Resolved]
  - Acne [None]
  - Off label use [None]
  - Menstruation irregular [None]
  - Drug ineffective for unapproved indication [None]

NARRATIVE: CASE EVENT DATE: 2016
